FAERS Safety Report 17217698 (Version 1)
Quarter: 2019Q4

REPORT INFORMATION
  Report Type: Spontaneous
  Country: DK (occurrence: DK)
  Receive Date: 20191231
  Receipt Date: 20191231
  Transmission Date: 20200122
  Serious: Yes (Hospitalization, Other)
  Sender: FDA-Public Use
  Company Number: DK-AUROBINDO-AUR-APL-2019-108319

PATIENT
  Age: 95 Year
  Sex: Female

DRUGS (2)
  1. DESMOPRESSIN [Suspect]
     Active Substance: DESMOPRESSIN
     Indication: NOCTURIA
     Dosage: 60 MICROGRAM, ONCE A DAY
     Route: 065
  2. LOSARTANPOTASSIUM+HYDROCHLOROTHIAZIDE FILM COATED TABLET 100/25MG [Suspect]
     Active Substance: HYDROCHLOROTHIAZIDE\LOSARTAN POTASSIUM
     Indication: HYPERTENSION
     Dosage: UNK
     Route: 065

REACTIONS (5)
  - Pneumonia [Unknown]
  - Hallucination [Unknown]
  - Hyponatraemia [Recovered/Resolved]
  - Confusional state [Unknown]
  - Delirium [Unknown]
